FAERS Safety Report 20103004 (Version 1)
Quarter: 2021Q4

REPORT INFORMATION
  Report Type: Report from Study
  Country: BR (occurrence: BR)
  Receive Date: 20211123
  Receipt Date: 20211123
  Transmission Date: 20220303
  Serious: Yes (Other)
  Sender: FDA-Public Use
  Company Number: BR-NOVARTISPH-NVSC2021BR264058

PATIENT
  Age: 49 Year
  Sex: Female

DRUGS (3)
  1. TAMOXIFEN CITRATE [Suspect]
     Active Substance: TAMOXIFEN CITRATE
     Indication: Product used for unknown indication
     Dosage: UNK
     Route: 065
  2. ANASTROZOLE [Suspect]
     Active Substance: ANASTROZOLE
     Indication: Product used for unknown indication
     Dosage: UNK
     Route: 065
  3. ZOLEDRONIC ACID [Suspect]
     Active Substance: ZOLEDRONIC ACID
     Indication: Product used for unknown indication
     Dosage: UNK
     Route: 065

REACTIONS (12)
  - Malignant neoplasm progression [Unknown]
  - Metastases to bone [Unknown]
  - Pain [Unknown]
  - Osteolysis [Unknown]
  - Metastases to central nervous system [Unknown]
  - Dizziness [Unknown]
  - Liver disorder [Unknown]
  - Pulmonary granuloma [Unknown]
  - Cough [Unknown]
  - Fatigue [Unknown]
  - Lung consolidation [Unknown]
  - Lymphadenopathy mediastinal [Unknown]
